FAERS Safety Report 12975870 (Version 2)
Quarter: 2017Q3

REPORT INFORMATION
  Report Type: Report from Study
  Country: None (occurrence: BR)
  Receive Date: 20161125
  Receipt Date: 20170724
  Transmission Date: 20171127
  Serious: Yes (Other)
  Sender: FDA-Public Use
  Company Number: BR-ABBVIE-16P-020-1791925-00

PATIENT
  Sex: Female
  Weight: 75 kg

DRUGS (16)
  1. DIOVAN [Concomitant]
     Active Substance: VALSARTAN
     Indication: CARDIAC DISORDER
  2. AAS [Concomitant]
     Active Substance: ASPIRIN
     Indication: ANTICOAGULANT THERAPY
     Dosage: 100MG AFTER LUNCH
  3. SIMVASTATIN. [Concomitant]
     Active Substance: SIMVASTATIN
     Indication: BLOOD DISORDER
  4. ZANIDIP [Concomitant]
     Active Substance: LERCANIDIPINE HYDROCHLORIDE
     Indication: HYPERTENSION
  5. MONOCORDIL [Concomitant]
     Active Substance: ISOSORBIDE MONONITRATE
     Indication: ARRHYTHMIA
  6. DIOVAN [Concomitant]
     Active Substance: VALSARTAN
     Indication: HYPERTENSION
  7. PROPANOLOL [Concomitant]
     Active Substance: PROPRANOLOL HYDROCHLORIDE
     Indication: BLOOD PRESSURE ABNORMAL
  8. MODURETIC 5-50 [Concomitant]
     Active Substance: AMILORIDE HYDROCHLORIDE\HYDROCHLOROTHIAZIDE
     Indication: SWELLING
     Dates: start: 2000
  9. INSULIN HUMAN [Concomitant]
     Active Substance: INSULIN HUMAN
     Indication: DIABETES MELLITUS
     Dosage: REGULAR    MORNING / LUNCH / 10 P.M.
     Dates: start: 2000
  10. METFORMIN [Concomitant]
     Active Substance: METFORMIN HYDROCHLORIDE
     Indication: DIABETES MELLITUS
     Dates: start: 2000
  11. MODURETIC 5-50 [Concomitant]
     Active Substance: AMILORIDE HYDROCHLORIDE\HYDROCHLOROTHIAZIDE
     Indication: HYPERTENSION
  12. INSULIN H NPH [Concomitant]
     Indication: DIABETES MELLITUS
     Dosage: MORNING / LUNCH / 10 P.M.
     Dates: start: 2000
  13. MONOCORDIL [Concomitant]
     Active Substance: ISOSORBIDE MONONITRATE
     Indication: ANGINA PECTORIS
  14. LIPIDIL [Suspect]
     Active Substance: FENOFIBRATE
     Indication: BLOOD TRIGLYCERIDES ABNORMAL
     Dosage: DAILY DOSE: 160 MG; MORNING
     Route: 048
     Dates: start: 2006
  15. ISORDIL [Concomitant]
     Active Substance: ISOSORBIDE DINITRATE
     Indication: ANGINA PECTORIS
     Dates: start: 2012
  16. ISORDIL [Concomitant]
     Active Substance: ISOSORBIDE DINITRATE
     Indication: ARRHYTHMIA

REACTIONS (7)
  - Gastritis [Not Recovered/Not Resolved]
  - Milk allergy [Not Recovered/Not Resolved]
  - Chest pain [Recovered/Resolved]
  - Depression [Not Recovered/Not Resolved]
  - Cow^s milk intolerance [Not Recovered/Not Resolved]
  - Thrombosis [Recovered/Resolved]
  - Intentional product misuse [Unknown]

NARRATIVE: CASE EVENT DATE: 2006
